FAERS Safety Report 19521037 (Version 1)
Quarter: 2021Q3

REPORT INFORMATION
  Report Type: Report from Study
  Country: AU (occurrence: AU)
  Receive Date: 20210712
  Receipt Date: 20210712
  Transmission Date: 20211014
  Serious: Yes (Hospitalization, Other)
  Sender: FDA-Public Use
  Company Number: AU-BIOGEN-2021BI01027497

PATIENT
  Sex: Female

DRUGS (6)
  1. BOSENTAN. [Concomitant]
     Active Substance: BOSENTAN
     Indication: PULMONARY ARTERIAL HYPERTENSION
     Route: 065
  2. PREDNISOLONE. [Concomitant]
     Active Substance: PREDNISOLONE
     Indication: GASTROOESOPHAGEAL REFLUX DISEASE
     Route: 065
  3. SILDENAFIL. [Concomitant]
     Active Substance: SILDENAFIL
     Indication: PULMONARY ARTERIAL HYPERTENSION
     Route: 065
  4. NITROGLYCERIN SPRAY [Concomitant]
     Active Substance: NITROGLYCERIN
     Indication: RAYNAUD^S PHENOMENON
     Route: 060
  5. METHOTREXATE. [Concomitant]
     Active Substance: METHOTREXATE
     Indication: GASTROOESOPHAGEAL REFLUX DISEASE
     Route: 065
  6. TYSABRI [Suspect]
     Active Substance: NATALIZUMAB
     Indication: MULTIPLE SCLEROSIS
     Route: 042
     Dates: start: 20181003

REACTIONS (8)
  - Hypoaesthesia [Unknown]
  - Pericardial effusion [Recovered/Resolved]
  - Pleural effusion [Unknown]
  - Pneumonia [Unknown]
  - Red blood cell count decreased [Not Recovered/Not Resolved]
  - Fall [Recovered/Resolved]
  - Fatigue [Not Recovered/Not Resolved]
  - C-reactive protein increased [Not Recovered/Not Resolved]

NARRATIVE: CASE EVENT DATE: 2021
